FAERS Safety Report 7945876 (Version 2)
Quarter: 2013Q2

REPORT INFORMATION
  Report Type: Report from Study
  Country: US (occurrence: US)
  Receive Date: 20110516
  Receipt Date: 20130419
  Transmission Date: 20140414
  Serious: Yes (Hospitalization, Other)
  Sender: FDA-Public Use
  Company Number: PHHY2011US38983

PATIENT
  Age: 28 Year
  Sex: Female

DRUGS (3)
  1. GILENYA [Suspect]
     Indication: MULTIPLE SCLEROSIS
     Dosage: 0.5 MG, QD
     Route: 048
     Dates: start: 201103
  2. GILENYA [Suspect]
     Dosage: 0.5 MG, QD
     Route: 048
     Dates: start: 20110505
  3. SPIRONOLACTONE [Concomitant]

REACTIONS (7)
  - Heart rate irregular [Recovering/Resolving]
  - Atrioventricular block second degree [Recovered/Resolved]
  - Electrocardiogram abnormal [Recovered/Resolved]
  - Palpitations [Not Recovered/Not Resolved]
  - Monocyte count increased [Unknown]
  - Dizziness [Unknown]
  - Dyspnoea [Recovered/Resolved]
